FAERS Safety Report 4317847-2 (Version None)
Quarter: 2004Q1

REPORT INFORMATION
  Report Type: 
  Country: None (occurrence: None)
  Receive Date: 20040316
  Receipt Date: 20040219
  Transmission Date: 20041129
  Serious: Yes (Congenital Anomaly)
  Sender: FDA-Public Use
  Company Number: 200411304US

PATIENT
  Sex: Male

DRUGS (1)
  1. LOVENOX [Suspect]
     Route: 065

REACTIONS (7)
  - GASTROOESOPHAGEAL REFLUX DISEASE [None]
  - HYPERMETROPIA [None]
  - HYPOSPADIAS [None]
  - LIMB MALFORMATION [None]
  - MATERNAL DRUGS AFFECTING FOETUS [None]
  - SYNOSTOSIS [None]
  - TONGUE GEOGRAPHIC [None]
